FAERS Safety Report 25874203 (Version 1)
Quarter: 2025Q4

REPORT INFORMATION
  Report Type: Spontaneous
  Country: CH (occurrence: CH)
  Receive Date: 20251002
  Receipt Date: 20251002
  Transmission Date: 20260119
  Serious: Yes (Other)
  Sender: INSUD PHARMA
  Company Number: CH-INSUD PHARMA-2509CH08038

PATIENT

DRUGS (2)
  1. BETAMETHASONE [Suspect]
     Active Substance: BETAMETHASONE
     Indication: Back pain
     Dosage: UNK, SINGLE, AT LEVEL L5/S1
     Route: 008
  2. BUPIVACAINE [Suspect]
     Active Substance: BUPIVACAINE
     Indication: Back pain
     Dosage: 0.5%, SINGLE, AT LEVEL L5/S1
     Route: 008

REACTIONS (6)
  - Conus medullaris syndrome [Not Recovered/Not Resolved]
  - Sensory loss [Recovering/Resolving]
  - Bladder dysfunction [Not Recovered/Not Resolved]
  - Stress urinary incontinence [Not Recovered/Not Resolved]
  - Functional gastrointestinal disorder [Not Recovered/Not Resolved]
  - Dural tear [Unknown]
